FAERS Safety Report 19972818 (Version 1)
Quarter: 2021Q4

REPORT INFORMATION
  Report Type: Spontaneous
  Country: US (occurrence: US)
  Receive Date: 20211019
  Receipt Date: 20211019
  Transmission Date: 20220303
  Serious: Yes (Disabling)
  Sender: FDA-Public Use
  Company Number: None

PATIENT
  Age: 23 Year
  Sex: Female
  Weight: 56.25 kg

DRUGS (1)
  1. CLONAZEPAM [Suspect]
     Active Substance: CLONAZEPAM
     Indication: Anxiety
     Dosage: ?          QUANTITY:1.5 TABLET(S);
     Route: 048
     Dates: end: 20200620

REACTIONS (8)
  - Withdrawal syndrome [None]
  - Illness [None]
  - Pain [None]
  - Back pain [None]
  - Nerve injury [None]
  - Emotional disorder [None]
  - Emotional distress [None]
  - Off label use [None]
